FAERS Safety Report 6999826-X (Version None)
Quarter: 2010Q3

REPORT INFORMATION
  Report Type: 
  Country: None (occurrence: None)
  Receive Date: 20100920
  Receipt Date: 20100914
  Transmission Date: 20110219
  Serious: Yes (Death, Other)
  Sender: FDA-Public Use
  Company Number: PHHY2010FR60613

PATIENT
  Age: 48 Year
  Sex: Female

DRUGS (8)
  1. CYCLOSPORINE [Suspect]
     Indication: STEM CELL TRANSPLANT
     Dosage: UNK
  2. CYCLOSPORINE [Suspect]
     Indication: GRAFT VERSUS HOST DISEASE
  3. METHOTREXATE [Suspect]
     Indication: STEM CELL TRANSPLANT
  4. METHOTREXATE [Suspect]
     Indication: GRAFT VERSUS HOST DISEASE
  5. BUSULFAN [Concomitant]
     Dosage: UNK
  6. CYCLOPHOSPHAMIDE [Concomitant]
     Dosage: UNK
  7. AZITHROMYCIN [Concomitant]
  8. NITAZOXANIDE [Concomitant]
     Dosage: UNK

REACTIONS (10)
  - ACUTE GRAFT VERSUS HOST DISEASE IN INTESTINE [None]
  - BK VIRUS INFECTION [None]
  - CRYPTOSPORIDIOSIS INFECTION [None]
  - CYTOMEGALOVIRUS INFECTION [None]
  - DECREASED APPETITE [None]
  - DIARRHOEA [None]
  - IMMUNODEFICIENCY [None]
  - PNEUMONIA FUNGAL [None]
  - VOMITING [None]
  - WEIGHT DECREASED [None]
